FAERS Safety Report 10485911 (Version 1)
Quarter: 2014Q4

REPORT INFORMATION
  Report Type: Spontaneous
  Country: US (occurrence: US)
  Receive Date: 20141001
  Receipt Date: 20141001
  Transmission Date: 20150528
  Serious: Yes (Other)
  Sender: FDA-Public Use
  Company Number: US-BRISTOL-MYERS SQUIBB COMPANY-21452750

PATIENT
  Age: 72 Year
  Sex: Female
  Weight: 65.3 kg

DRUGS (1)
  1. BYETTA [Suspect]
     Active Substance: EXENATIDE
     Dosage: INJECTIONS

REACTIONS (1)
  - Breast cancer recurrent [Recovered/Resolved]
